FAERS Safety Report 4870615-5 (Version None)
Quarter: 2005Q4

REPORT INFORMATION
  Report Type: 
  Country: None (occurrence: None)
  Receive Date: 20051228
  Receipt Date: 20051220
  Transmission Date: 20060501
  Serious: Yes (Hospitalization)
  Sender: FDA-Public Use
  Company Number: 2005168049

PATIENT
  Age: 83 Year
  Sex: Female

DRUGS (6)
  1. AMLODIPINE [Suspect]
     Indication: ILL-DEFINED DISORDER
     Dosage: 5 MG (5 MG, 1 IN 1 D), ORAL
     Route: 048
  2. INDAPAMIDE [Suspect]
     Indication: ILL-DEFINED DISORDER
     Dosage: 2.5 MG (2.5 MG, 1 IN 1 D), ORAL
     Route: 048
  3. FEROGARD-500 (FERROUS SULFATE EXSICCATED, SODIUM ASCORBATE) [Suspect]
     Indication: ILL-DEFINED DISORDER
     Dosage: 3 DF (INTERVAL: EVERY DAY), ORAL
     Route: 048
  4. IDARAC [Suspect]
     Indication: ILL-DEFINED DISORDER
     Dosage: 600 MG (200 MG, 1 IN 3 D), ORAL
     Route: 048
  5. TAREG (VALSARTAN) [Suspect]
     Indication: ILL-DEFINED DISORDER
     Dosage: 1 DF (1 IN 1 D), ORAL
     Route: 048
  6. NEXIUM [Suspect]
     Indication: ILL-DEFINED DISORDER
     Dosage: 1 DF (1 IN 1 D), ORAL
     Route: 048

REACTIONS (1)
  - URINARY RETENTION [None]
